FAERS Safety Report 19031244 (Version 1)
Quarter: 2021Q1

REPORT INFORMATION
  Report Type: Spontaneous
  Country: US (occurrence: US)
  Receive Date: 20210319
  Receipt Date: 20210319
  Transmission Date: 20210420
  Serious: Yes (Hospitalization)
  Sender: FDA-Public Use
  Company Number: None

PATIENT
  Age: 76 Year
  Sex: Female
  Weight: 51.3 kg

DRUGS (4)
  1. TAXOL [Suspect]
     Active Substance: PACLITAXEL
     Dates: end: 20191119
  2. DOXORUBICIN HYDROCHLORIDE. [Suspect]
     Active Substance: DOXORUBICIN HYDROCHLORIDE
     Dates: end: 20190730
  3. CARBOPLATIN. [Suspect]
     Active Substance: CARBOPLATIN
     Dates: end: 20191105
  4. CYCLOPHOSPHAMIDE. [Suspect]
     Active Substance: CYCLOPHOSPHAMIDE
     Dates: end: 20190730

REACTIONS (8)
  - Brain natriuretic peptide increased [None]
  - Troponin increased [None]
  - Right ventricular enlargement [None]
  - Electrocardiogram ST-T segment abnormal [None]
  - Pulmonary hypertension [None]
  - Hypoxia [None]
  - Right ventricular systolic pressure [None]
  - Dyspnoea exertional [None]

NARRATIVE: CASE EVENT DATE: 20210317
